FAERS Safety Report 16370060 (Version 1)
Quarter: 2019Q2

REPORT INFORMATION
  Report Type: Spontaneous
  Country: US (occurrence: US)
  Receive Date: 20190530
  Receipt Date: 20190530
  Transmission Date: 20190711
  Serious: Yes (Other)
  Sender: FDA-Public Use
  Company Number: US-PFIZER INC-2018454627

PATIENT
  Age: 64 Year
  Sex: Female

DRUGS (2)
  1. XELJANZ [Suspect]
     Active Substance: TOFACITINIB CITRATE
     Dosage: 5 MG, (CUTTING DOSAGE IN HALF)
  2. XELJANZ [Suspect]
     Active Substance: TOFACITINIB CITRATE
     Dosage: 5 MG
     Dates: start: 201903

REACTIONS (5)
  - Muscle spasms [Unknown]
  - Ulna fracture [Unknown]
  - Fall [Unknown]
  - Intentional product misuse [Unknown]
  - Wrist fracture [Unknown]
